FAERS Safety Report 12972243 (Version 1)
Quarter: 2016Q4

REPORT INFORMATION
  Report Type: Spontaneous
  Country: US (occurrence: US)
  Receive Date: 20161124
  Receipt Date: 20161124
  Transmission Date: 20170207
  Serious: No
  Sender: FDA-Public Use
  Company Number: US-TEVA-705578USA

PATIENT
  Sex: Female
  Weight: 87.17 kg

DRUGS (9)
  1. PERCOCET [Concomitant]
     Active Substance: ACETAMINOPHEN\OXYCODONE HYDROCHLORIDE
     Indication: NEUROPATHY PERIPHERAL
     Dosage: 10/325 TWO TWICE A DAY
  2. OTREXUP [Concomitant]
     Active Substance: METHOTREXATE
     Dosage: 15 MG/0.4 ML
     Dates: start: 20160830
  3. PREDNISONE. [Suspect]
     Active Substance: PREDNISONE
     Indication: RHEUMATOID ARTHRITIS
     Route: 065
     Dates: start: 2009
  4. VITAMIN D3 [Concomitant]
     Active Substance: CHOLECALCIFEROL
     Indication: RHEUMATOID ARTHRITIS
     Dosage: 4000 IU (INTERNATIONAL UNIT) DAILY;
  5. CLARITIN [Concomitant]
     Active Substance: LORATADINE
     Indication: HYPERSENSITIVITY
     Dosage: 10 MILLIGRAM DAILY;
  6. FOLIC ACID. [Concomitant]
     Active Substance: FOLIC ACID
     Indication: RHEUMATOID ARTHRITIS
     Dosage: 1 MILLIGRAM DAILY;
  7. TUMERIC [Concomitant]
     Active Substance: TURMERIC
     Indication: PHYTOTHERAPY
     Dosage: 1 DOSAGE FORMS DAILY; 1 DF= 1 CAPSULE
  8. XELJANZ [Concomitant]
     Active Substance: TOFACITINIB CITRATE
     Indication: RHEUMATOID ARTHRITIS
     Route: 048
     Dates: start: 20160630
  9. METHADONE [Concomitant]
     Active Substance: METHADONE HYDROCHLORIDE
     Indication: HEADACHE
     Dosage: 30 MILLIGRAM DAILY;

REACTIONS (2)
  - Drug effect incomplete [Unknown]
  - Weight increased [Not Recovered/Not Resolved]

NARRATIVE: CASE EVENT DATE: 2009
